FAERS Safety Report 5729485-5 (Version None)
Quarter: 2008Q2

REPORT INFORMATION
  Report Type: 
  Country: None (occurrence: None)
  Receive Date: 20080506
  Receipt Date: 20080424
  Transmission Date: 20081010
  Serious: Yes (Other)
  Sender: FDA-Public Use
  Company Number: US-ELI_LILLY_AND_COMPANY-US200804006254

PATIENT
  Sex: Female

DRUGS (7)
  1. BYETTA [Suspect]
     Indication: WEIGHT DECREASED
     Dosage: 5 UG, 2/D
     Route: 058
  2. BYETTA [Suspect]
     Dosage: 10 UG, 2/D
     Route: 058
     Dates: end: 20070301
  3. METFORMIN HCL [Concomitant]
  4. LEVOXYL [Concomitant]
     Indication: THYROID DISORDER
     Dosage: 100 UG, DAILY (1/D)
     Route: 048
  5. NEXIUM [Concomitant]
     Route: 048
     Dates: start: 19870101
  6. ATENOLOL [Concomitant]
     Dosage: 10 MG, DAILY (1/D)
     Route: 048
     Dates: start: 19910101
  7. XANAX [Concomitant]
     Dosage: 0.25 MG, DAILY (1/D)
     Route: 048

REACTIONS (1)
  - BREAST CANCER [None]
